FAERS Safety Report 4604922-8 (Version None)
Quarter: 2005Q1

REPORT INFORMATION
  Report Type: 
  Country: None (occurrence: None)
  Receive Date: 20050310
  Receipt Date: 20050310
  Transmission Date: 20050727
  Serious: Yes (Hospitalization)
  Sender: FDA-Public Use
  Company Number: None

PATIENT
  Age: 81 Year
  Sex: Male
  Weight: 64 kg

DRUGS (2)
  1. GATIFLOXACIN [Suspect]
     Indication: URINARY TRACT INFECTION
     Dosage: 400MG, DAILY, ORAL
     Route: 048
     Dates: start: 20041213, end: 20041222
  2. CIPROFLOXACIN [Suspect]
     Indication: URINARY TRACT INFECTION
     Dosage: 500MG, Q12H, ORAL
     Route: 048
     Dates: start: 20041203, end: 20041213

REACTIONS (1)
  - CLOSTRIDIUM COLITIS [None]
